FAERS Safety Report 5698601-6 (Version None)
Quarter: 2008Q2

REPORT INFORMATION
  Report Type: 
  Country: None (occurrence: None)
  Receive Date: 20080408
  Receipt Date: 20061024
  Transmission Date: 20081010
  Serious: No
  Sender: FDA-Public Use
  Company Number: US-BAYER-US-2006-032369

PATIENT
  Age: 47 Year
  Sex: Female

DRUGS (4)
  1. CLIMARA [Suspect]
     Indication: MENOPAUSAL SYMPTOMS
     Dosage: UNIT DOSE: 0.05 MG
     Route: 062
  2. PRILOSEC [Concomitant]
  3. TYLENOL W/ CODEINE [Concomitant]
     Indication: PAIN
  4. KLONOPIN [Concomitant]
     Indication: ANXIETY
     Dosage: UNIT DOSE: 1 MG

REACTIONS (2)
  - APPLICATION SITE PAPULES [None]
  - PHARMACEUTICAL PRODUCT COMPLAINT [None]
